FAERS Safety Report 14951907 (Version 4)
Quarter: 2020Q1

REPORT INFORMATION
  Report Type: Report from Study
  Country: GB (occurrence: GB)
  Receive Date: 20180530
  Receipt Date: 20200302
  Transmission Date: 20200409
  Serious: Yes (Congenital Anomaly, Other)
  Sender: FDA-Public Use
  Company Number: GB-VIIV HEALTHCARE LIMITED-GB2018GSK093694

PATIENT

DRUGS (2)
  1. RILPIVIRINE [Suspect]
     Active Substance: RILPIVIRINE
     Indication: HIV INFECTION
     Dosage: 25 MG, QD
     Route: 064
     Dates: start: 20170601
  2. ABACAVIR SULFATE + LAMIVUDINE [Suspect]
     Active Substance: ABACAVIR SULFATE\LAMIVUDINE
     Indication: HIV INFECTION
     Dosage: 1 DF, UNK
     Route: 064
     Dates: start: 20170601

REACTIONS (2)
  - Congenital pyelocaliectasis [Unknown]
  - Foetal exposure during pregnancy [Unknown]
